FAERS Safety Report 4298862-4 (Version None)
Quarter: 2004Q1

REPORT INFORMATION
  Report Type: 
  Country: None (occurrence: None)
  Receive Date: 20040126
  Receipt Date: 20031110
  Transmission Date: 20041129
  Serious: No
  Sender: FDA-Public Use
  Company Number: USA031152008

PATIENT
  Age: 45 Year
  Sex: Female
  Weight: 64 kg

DRUGS (3)
  1. STRATTERA [Suspect]
     Indication: DEPRESSION
     Dosage: 25 MG/DAY
     Dates: start: 20031105
  2. SAM-E (ADEMETIONINE) [Concomitant]
  3. PROGESTERONE [Concomitant]

REACTIONS (1)
  - DEPRESSION [None]
